FAERS Safety Report 7083962-6 (Version None)
Quarter: 2010Q4

REPORT INFORMATION
  Report Type: 
  Country: None (occurrence: None)
  Receive Date: 20101104
  Receipt Date: 20100524
  Transmission Date: 20110411
  Serious: No
  Sender: FDA-Public Use
  Company Number: US-ABBOTT-10P-163-0646649-00

PATIENT
  Age: 55 Year
  Sex: Female

DRUGS (3)
  1. KALETRA [Suspect]
     Indication: ANTIRETROVIRAL THERAPY
  2. EPIVIR [Suspect]
     Indication: ANTIRETROVIRAL THERAPY
  3. VIREAD [Suspect]
     Indication: ANTIRETROVIRAL THERAPY

REACTIONS (3)
  - DEPRESSION [None]
  - NEUROPATHY PERIPHERAL [None]
  - PAIN IN EXTREMITY [None]
